FAERS Safety Report 18714522 (Version 31)
Quarter: 2024Q4

REPORT INFORMATION
  Report Type: Spontaneous
  Country: CA (occurrence: CA)
  Receive Date: 20210107
  Receipt Date: 20241205
  Transmission Date: 20250114
  Serious: Yes (Hospitalization, Disabling, Congenital Anomaly, Other)
  Sender: ALEXION PHARMACEUTICALS
  Company Number: 2021A001736

PATIENT
  Age: 80 Year
  Weight: 89 kg

DRUGS (421)
  1. ROSUVASTATIN CALCIUM [Suspect]
     Active Substance: ROSUVASTATIN CALCIUM
     Indication: Product used for unknown indication
  2. ROSUVASTATIN CALCIUM [Suspect]
     Active Substance: ROSUVASTATIN CALCIUM
  3. ROSUVASTATIN CALCIUM [Suspect]
     Active Substance: ROSUVASTATIN CALCIUM
  4. ROSUVASTATIN CALCIUM [Suspect]
     Active Substance: ROSUVASTATIN CALCIUM
  5. ROSUVASTATIN CALCIUM [Suspect]
     Active Substance: ROSUVASTATIN CALCIUM
     Dosage: UNKNOWN
  6. ROSUVASTATIN CALCIUM [Suspect]
     Active Substance: ROSUVASTATIN CALCIUM
     Dosage: UNKNOWN
  7. ROSUVASTATIN CALCIUM [Suspect]
     Active Substance: ROSUVASTATIN CALCIUM
     Dosage: UNKNOWN
  8. ROSUVASTATIN CALCIUM [Suspect]
     Active Substance: ROSUVASTATIN CALCIUM
     Dosage: UNKNOWN
  9. ROSUVASTATIN CALCIUM [Suspect]
     Active Substance: ROSUVASTATIN CALCIUM
     Dosage: UNKNOWN
  10. ROSUVASTATIN CALCIUM [Suspect]
     Active Substance: ROSUVASTATIN CALCIUM
     Dosage: UNKNOWN
  11. ROSUVASTATIN CALCIUM [Suspect]
     Active Substance: ROSUVASTATIN CALCIUM
     Dosage: UNKNOWN
  12. ROSUVASTATIN CALCIUM [Suspect]
     Active Substance: ROSUVASTATIN CALCIUM
     Dosage: UNKNOWN
  13. ROSUVASTATIN CALCIUM [Suspect]
     Active Substance: ROSUVASTATIN CALCIUM
     Dosage: UNKNOWN
  14. ROSUVASTATIN CALCIUM [Suspect]
     Active Substance: ROSUVASTATIN CALCIUM
     Dosage: UNKNOWN
  15. ROSUVASTATIN CALCIUM [Suspect]
     Active Substance: ROSUVASTATIN CALCIUM
     Dosage: UNKNOWN
  16. ROSUVASTATIN CALCIUM [Suspect]
     Active Substance: ROSUVASTATIN CALCIUM
     Dosage: UNKNOWN
  17. ROSUVASTATIN CALCIUM [Suspect]
     Active Substance: ROSUVASTATIN CALCIUM
     Dosage: UNKNOWN
  18. ROSUVASTATIN CALCIUM [Suspect]
     Active Substance: ROSUVASTATIN CALCIUM
     Dosage: UNKNOWN
  19. ROSUVASTATIN CALCIUM [Suspect]
     Active Substance: ROSUVASTATIN CALCIUM
     Dosage: UNKNOWN
  20. ROSUVASTATIN CALCIUM [Suspect]
     Active Substance: ROSUVASTATIN CALCIUM
     Dosage: UNKNOWN
  21. ROSUVASTATIN CALCIUM [Suspect]
     Active Substance: ROSUVASTATIN CALCIUM
     Dosage: UNKNOWN
  22. ROSUVASTATIN CALCIUM [Suspect]
     Active Substance: ROSUVASTATIN CALCIUM
     Dosage: UNKNOWN
  23. ROSUVASTATIN CALCIUM [Suspect]
     Active Substance: ROSUVASTATIN CALCIUM
     Dosage: UNKNOWN
  24. ROSUVASTATIN CALCIUM [Suspect]
     Active Substance: ROSUVASTATIN CALCIUM
     Dosage: UNKNOWN
  25. ROSUVASTATIN CALCIUM [Suspect]
     Active Substance: ROSUVASTATIN CALCIUM
     Dosage: UNKNOWN
  26. ROSUVASTATIN CALCIUM [Suspect]
     Active Substance: ROSUVASTATIN CALCIUM
     Dosage: UNKNOWN
  27. ROSUVASTATIN CALCIUM [Suspect]
     Active Substance: ROSUVASTATIN CALCIUM
     Dosage: UNKNOWN
  28. ROSUVASTATIN CALCIUM [Suspect]
     Active Substance: ROSUVASTATIN CALCIUM
     Dosage: UNKNOWN
  29. FLUMIST [Suspect]
     Active Substance: INFLUENZA A VIRUS A/CALIFORNIA/7/2009 (H1N1) LIVE(ATTENUATED) ANTIGEN\INFLUENZA A VIRUS A/PERTH/16/2
     Indication: Prophylaxis
     Dosage: NOT SPECIFIED, FREQUENCY: UNK
     Route: 065
  30. FLUMIST [Suspect]
     Active Substance: INFLUENZA A VIRUS A/CALIFORNIA/7/2009 (H1N1) LIVE(ATTENUATED) ANTIGEN\INFLUENZA A VIRUS A/PERTH/16/2
     Indication: Immunisation
     Dosage: NOT SPECIFIED, FREQUENCY: UNK
  31. FLUMIST [Suspect]
     Active Substance: INFLUENZA A VIRUS A/CALIFORNIA/7/2009 (H1N1) LIVE(ATTENUATED) ANTIGEN\INFLUENZA A VIRUS A/PERTH/16/2
     Dosage: NOT SPECIFIED, FREQUENCY: UNK
     Route: 065
  32. FLUMIST [Suspect]
     Active Substance: INFLUENZA A VIRUS A/CALIFORNIA/7/2009 (H1N1) LIVE(ATTENUATED) ANTIGEN\INFLUENZA A VIRUS A/PERTH/16/2
     Dosage: NOT SPECIFIED, FREQUENCY: UNK
  33. FLUMIST [Suspect]
     Active Substance: INFLUENZA A VIRUS A/CALIFORNIA/7/2009 (H1N1) LIVE(ATTENUATED) ANTIGEN\INFLUENZA A VIRUS A/PERTH/16/2
     Indication: Prophylaxis
     Dosage: NOT SPECIFIED, FREQUENCY: UNK
     Route: 065
  34. FLUMIST [Suspect]
     Active Substance: INFLUENZA A VIRUS A/CALIFORNIA/7/2009 (H1N1) LIVE(ATTENUATED) ANTIGEN\INFLUENZA A VIRUS A/PERTH/16/2
     Dosage: NOT SPECIFIED, FREQUENCY: UNK
  35. FLUMIST [Suspect]
     Active Substance: INFLUENZA A VIRUS A/CALIFORNIA/7/2009 (H1N1) LIVE(ATTENUATED) ANTIGEN\INFLUENZA A VIRUS A/PERTH/16/2
     Dosage: NOT SPECIFIED, FREQUENCY: UNK
     Route: 065
  36. FLUMIST [Suspect]
     Active Substance: INFLUENZA A VIRUS A/CALIFORNIA/7/2009 (H1N1) LIVE(ATTENUATED) ANTIGEN\INFLUENZA A VIRUS A/PERTH/16/2
     Dosage: NOT SPECIFIED, FREQUENCY: UNK
  37. FLUMIST [Suspect]
     Active Substance: INFLUENZA A VIRUS A/CALIFORNIA/7/2009 (H1N1) LIVE(ATTENUATED) ANTIGEN\INFLUENZA A VIRUS A/PERTH/16/2
     Indication: Prophylaxis
     Dosage: NOT SPECIFIED, FREQUENCY: UNK
  38. FLUMIST [Suspect]
     Active Substance: INFLUENZA A VIRUS A/CALIFORNIA/7/2009 (H1N1) LIVE(ATTENUATED) ANTIGEN\INFLUENZA A VIRUS A/PERTH/16/2
     Dosage: NOT SPECIFIED, FREQUENCY: UNK
  39. FLUMIST [Suspect]
     Active Substance: INFLUENZA A VIRUS A/CALIFORNIA/7/2009 (H1N1) LIVE(ATTENUATED) ANTIGEN\INFLUENZA A VIRUS A/PERTH/16/2
     Indication: Prophylaxis
     Dosage: NOT SPECIFIED, FREQUENCY: UNK
  40. FLUMIST [Suspect]
     Active Substance: INFLUENZA A VIRUS A/CALIFORNIA/7/2009 (H1N1) LIVE(ATTENUATED) ANTIGEN\INFLUENZA A VIRUS A/PERTH/16/2
     Dosage: NOT SPECIFIED, FREQUENCY: UNK
  41. FLUMIST [Suspect]
     Active Substance: INFLUENZA A VIRUS A/CALIFORNIA/7/2009 (H1N1) LIVE(ATTENUATED) ANTIGEN\INFLUENZA A VIRUS A/PERTH/16/2
     Indication: Prophylaxis
     Dosage: NOT SPECIFIED, FREQUENCY: UNK
  42. FLUMIST [Suspect]
     Active Substance: INFLUENZA A VIRUS A/CALIFORNIA/7/2009 (H1N1) LIVE(ATTENUATED) ANTIGEN\INFLUENZA A VIRUS A/PERTH/16/2
     Dosage: NOT SPECIFIED, FREQUENCY: UNK
  43. FLUMIST QUADRIVALENT [Suspect]
     Active Substance: INFLUENZA A VIRUS A/CALIFORNIA/7/2009 (H1N1) LIVE(ATTENUATED) ANTIGEN\INFLUENZA A VIRUS A/TEXAS/50/2
     Indication: Prophylaxis
     Dosage: NOT SPECIFIED, FREQUENCY: UNK
  44. FLUMIST QUADRIVALENT [Suspect]
     Active Substance: INFLUENZA A VIRUS A/CALIFORNIA/7/2009 (H1N1) LIVE(ATTENUATED) ANTIGEN\INFLUENZA A VIRUS A/TEXAS/50/2
     Dosage: NOT SPECIFIED, FREQUENCY: UNK
  45. FLUMIST QUADRIVALENT [Suspect]
     Active Substance: INFLUENZA A VIRUS A/CALIFORNIA/7/2009 (H1N1) LIVE(ATTENUATED) ANTIGEN\INFLUENZA A VIRUS A/TEXAS/50/2
     Indication: Prophylaxis
     Dosage: NOT SPECIFIED, FREQUENCY: UNK
  46. FLUMIST QUADRIVALENT [Suspect]
     Active Substance: INFLUENZA A VIRUS A/CALIFORNIA/7/2009 (H1N1) LIVE(ATTENUATED) ANTIGEN\INFLUENZA A VIRUS A/TEXAS/50/2
     Dosage: NOT SPECIFIED, FREQUENCY: UNK
  47. FLUMIST QUADRIVALENT [Suspect]
     Active Substance: INFLUENZA A VIRUS A/CALIFORNIA/7/2009 (H1N1) LIVE(ATTENUATED) ANTIGEN\INFLUENZA A VIRUS A/TEXAS/50/2
     Indication: Prophylaxis
     Dosage: NOT SPECIFIED, FREQUENCY: UNK
  48. FLUMIST QUADRIVALENT [Suspect]
     Active Substance: INFLUENZA A VIRUS A/CALIFORNIA/7/2009 (H1N1) LIVE(ATTENUATED) ANTIGEN\INFLUENZA A VIRUS A/TEXAS/50/2
     Dosage: NOT SPECIFIED, FREQUENCY: UNK
  49. BUDESONIDE [Suspect]
     Active Substance: BUDESONIDE
     Indication: Asthma
     Dosage: 1 EVERY 1 DAYS
     Route: 065
  50. BUDESONIDE [Suspect]
     Active Substance: BUDESONIDE
     Indication: Product used for unknown indication
     Dosage: 1 EVERY 1 DAYS
  51. BUDESONIDE [Suspect]
     Active Substance: BUDESONIDE
     Dosage: 1 EVERY 1 DAYS
     Route: 065
  52. BUDESONIDE [Suspect]
     Active Substance: BUDESONIDE
     Dosage: 1 EVERY 1 DAYS
  53. INFLUENZA VIRUS VACCINE [Suspect]
     Active Substance: INFLUENZA VIRUS VACCINE
     Indication: Prophylaxis
  54. INFLUENZA VIRUS VACCINE [Suspect]
     Active Substance: INFLUENZA VIRUS VACCINE
     Indication: Immunisation
  55. ROSUVASTATIN [Suspect]
     Active Substance: ROSUVASTATIN
  56. ROSUVASTATIN [Suspect]
     Active Substance: ROSUVASTATIN
  57. ROSUVASTATIN [Suspect]
     Active Substance: ROSUVASTATIN
  58. ROSUVASTATIN CALCIUM [Suspect]
     Active Substance: ROSUVASTATIN CALCIUM
     Indication: Product used for unknown indication
  59. ROSUVASTATIN CALCIUM [Suspect]
     Active Substance: ROSUVASTATIN CALCIUM
  60. SYMBICORT [Suspect]
     Active Substance: BUDESONIDE\FORMOTEROL FUMARATE DIHYDRATE
     Dosage: UNKNOWN, FREQUENCY: UNK
  61. SYMBICORT [Suspect]
     Active Substance: BUDESONIDE\FORMOTEROL FUMARATE DIHYDRATE
     Dosage: UNKNOWN, FREQUENCY: UNK
  62. SYMBICORT [Suspect]
     Active Substance: BUDESONIDE\FORMOTEROL FUMARATE DIHYDRATE
     Dosage: UNKNOWN, FREQUENCY: UNK
  63. SYMBICORT [Suspect]
     Active Substance: BUDESONIDE\FORMOTEROL FUMARATE DIHYDRATE
     Dosage: UNKNOWN, FREQUENCY: UNK
  64. SYMBICORT [Suspect]
     Active Substance: BUDESONIDE\FORMOTEROL FUMARATE DIHYDRATE
     Dosage: UNKNOWN, FREQUENCY: UNK
  65. SYMBICORT [Suspect]
     Active Substance: BUDESONIDE\FORMOTEROL FUMARATE DIHYDRATE
     Dosage: UNKNOWN, FREQUENCY: UNK
  66. SYMBICORT [Suspect]
     Active Substance: BUDESONIDE\FORMOTEROL FUMARATE DIHYDRATE
     Dosage: UNKNOWN, FREQUENCY: UNK
  67. SYMBICORT [Suspect]
     Active Substance: BUDESONIDE\FORMOTEROL FUMARATE DIHYDRATE
     Dosage: UNKNOWN, FREQUENCY: UNK
  68. SYMBICORT [Suspect]
     Active Substance: BUDESONIDE\FORMOTEROL FUMARATE DIHYDRATE
     Dosage: UNKNOWN, FREQUENCY: UNK
  69. SYMBICORT [Suspect]
     Active Substance: BUDESONIDE\FORMOTEROL FUMARATE DIHYDRATE
     Dosage: UNKNOWN, FREQUENCY: UNK
  70. SYMBICORT [Suspect]
     Active Substance: BUDESONIDE\FORMOTEROL FUMARATE DIHYDRATE
     Indication: Asthma
     Dosage: 2 DF TWO TIMES A DAY
  71. SYMBICORT [Suspect]
     Active Substance: BUDESONIDE\FORMOTEROL FUMARATE DIHYDRATE
     Dosage: 2 DF TWO TIMES A DAY
  72. SYMBICORT [Suspect]
     Active Substance: BUDESONIDE\FORMOTEROL FUMARATE DIHYDRATE
     Dosage: 2 DF TWO TIMES A DAY
  73. SYMBICORT [Suspect]
     Active Substance: BUDESONIDE\FORMOTEROL FUMARATE DIHYDRATE
     Dosage: 2 DF TWO TIMES A DAY
  74. SYMBICORT [Suspect]
     Active Substance: BUDESONIDE\FORMOTEROL FUMARATE DIHYDRATE
     Dosage: UNKNOWN, FREQUENCY: UNK
  75. SYMBICORT [Suspect]
     Active Substance: BUDESONIDE\FORMOTEROL FUMARATE DIHYDRATE
     Dosage: UNKNOWN, FREQUENCY: UNK
  76. SYMBICORT [Suspect]
     Active Substance: BUDESONIDE\FORMOTEROL FUMARATE DIHYDRATE
     Dosage: UNKNOWN, FREQUENCY: UNK
  77. SYMBICORT [Suspect]
     Active Substance: BUDESONIDE\FORMOTEROL FUMARATE DIHYDRATE
     Dosage: UNKNOWN, FREQUENCY: UNK
  78. SYMBICORT [Suspect]
     Active Substance: BUDESONIDE\FORMOTEROL FUMARATE DIHYDRATE
     Dosage: UNKNOWN, FREQUENCY: UNK
  79. SYMBICORT [Suspect]
     Active Substance: BUDESONIDE\FORMOTEROL FUMARATE DIHYDRATE
     Dosage: UNKNOWN, FREQUENCY: UNK
  80. SYMBICORT [Suspect]
     Active Substance: BUDESONIDE\FORMOTEROL FUMARATE DIHYDRATE
     Dosage: UNKNOWN, FREQUENCY: UNK
  81. SYMBICORT [Suspect]
     Active Substance: BUDESONIDE\FORMOTEROL FUMARATE DIHYDRATE
     Dosage: UNKNOWN, FREQUENCY: UNK
  82. SYMBICORT [Suspect]
     Active Substance: BUDESONIDE\FORMOTEROL FUMARATE DIHYDRATE
     Dosage: UNKNOWN, FREQUENCY: UNK
  83. SYMBICORT [Suspect]
     Active Substance: BUDESONIDE\FORMOTEROL FUMARATE DIHYDRATE
     Dosage: UNKNOWN, FREQUENCY: UNK
  84. SYMBICORT [Suspect]
     Active Substance: BUDESONIDE\FORMOTEROL FUMARATE DIHYDRATE
     Dosage: UNKNOWN, FREQUENCY: UNK
  85. SYMBICORT [Suspect]
     Active Substance: BUDESONIDE\FORMOTEROL FUMARATE DIHYDRATE
     Dosage: UNKNOWN, FREQUENCY: UNK
  86. SYMBICORT [Suspect]
     Active Substance: BUDESONIDE\FORMOTEROL FUMARATE DIHYDRATE
     Dosage: UNKNOWN, FREQUENCY: UNK
  87. SYMBICORT [Suspect]
     Active Substance: BUDESONIDE\FORMOTEROL FUMARATE DIHYDRATE
     Dosage: UNKNOWN, FREQUENCY: UNK
  88. SYMBICORT [Suspect]
     Active Substance: BUDESONIDE\FORMOTEROL FUMARATE DIHYDRATE
     Dosage: UNKNOWN, FREQUENCY: UNK
  89. SYMBICORT [Suspect]
     Active Substance: BUDESONIDE\FORMOTEROL FUMARATE DIHYDRATE
     Dosage: UNKNOWN, FREQUENCY: UNK
  90. SYMBICORT [Suspect]
     Active Substance: BUDESONIDE\FORMOTEROL FUMARATE DIHYDRATE
     Dosage: UNKNOWN, FREQUENCY: UNK
  91. SYMBICORT [Suspect]
     Active Substance: BUDESONIDE\FORMOTEROL FUMARATE DIHYDRATE
     Dosage: UNKNOWN, FREQUENCY: UNK
  92. SYMBICORT [Suspect]
     Active Substance: BUDESONIDE\FORMOTEROL FUMARATE DIHYDRATE
     Dosage: UNKNOWN, FREQUENCY: UNK
  93. SYMBICORT [Suspect]
     Active Substance: BUDESONIDE\FORMOTEROL FUMARATE DIHYDRATE
     Dosage: UNKNOWN, FREQUENCY: UNK
  94. SYMBICORT [Suspect]
     Active Substance: BUDESONIDE\FORMOTEROL FUMARATE DIHYDRATE
     Dosage: UNKNOWN, FREQUENCY: UNK
  95. SYMBICORT [Suspect]
     Active Substance: BUDESONIDE\FORMOTEROL FUMARATE DIHYDRATE
     Dosage: UNKNOWN, FREQUENCY: UNK
  96. SYMBICORT [Suspect]
     Active Substance: BUDESONIDE\FORMOTEROL FUMARATE DIHYDRATE
     Dosage: UNKNOWN, FREQUENCY: UNK
  97. SYMBICORT [Suspect]
     Active Substance: BUDESONIDE\FORMOTEROL FUMARATE DIHYDRATE
     Dosage: UNKNOWN, FREQUENCY: UNK
  98. SYMBICORT [Suspect]
     Active Substance: BUDESONIDE\FORMOTEROL FUMARATE DIHYDRATE
     Indication: Asthma
  99. SYMBICORT [Suspect]
     Active Substance: BUDESONIDE\FORMOTEROL FUMARATE DIHYDRATE
  100. SYMBICORT [Suspect]
     Active Substance: BUDESONIDE\FORMOTEROL FUMARATE DIHYDRATE
     Indication: Asthma
  101. SYMBICORT [Suspect]
     Active Substance: BUDESONIDE\FORMOTEROL FUMARATE DIHYDRATE
  102. SYMBICORT [Suspect]
     Active Substance: BUDESONIDE\FORMOTEROL FUMARATE DIHYDRATE
     Indication: Asthma
  103. SYMBICORT [Suspect]
     Active Substance: BUDESONIDE\FORMOTEROL FUMARATE DIHYDRATE
  104. SYMBICORT [Suspect]
     Active Substance: BUDESONIDE\FORMOTEROL FUMARATE DIHYDRATE
     Indication: Asthma
  105. SYMBICORT [Suspect]
     Active Substance: BUDESONIDE\FORMOTEROL FUMARATE DIHYDRATE
  106. SYMBICORT [Suspect]
     Active Substance: BUDESONIDE\FORMOTEROL FUMARATE DIHYDRATE
  107. CICLESONIDE [Suspect]
     Active Substance: CICLESONIDE
     Indication: Product used for unknown indication
  108. CICLESONIDE [Suspect]
     Active Substance: CICLESONIDE
  109. ACLIDINIUM BROMIDE\FORMOTEROL FUMARATE [Suspect]
     Active Substance: ACLIDINIUM BROMIDE\FORMOTEROL FUMARATE
     Indication: Product used for unknown indication
  110. ACLIDINIUM BROMIDE\FORMOTEROL FUMARATE [Suspect]
     Active Substance: ACLIDINIUM BROMIDE\FORMOTEROL FUMARATE
  111. ACLIDINIUM BROMIDE\FORMOTEROL FUMARATE [Suspect]
     Active Substance: ACLIDINIUM BROMIDE\FORMOTEROL FUMARATE
  112. ACLIDINIUM BROMIDE\FORMOTEROL FUMARATE [Suspect]
     Active Substance: ACLIDINIUM BROMIDE\FORMOTEROL FUMARATE
  113. ACLIDINIUM BROMIDE\FORMOTEROL FUMARATE [Suspect]
     Active Substance: ACLIDINIUM BROMIDE\FORMOTEROL FUMARATE
     Dosage: UNKNOWN
  114. ACLIDINIUM BROMIDE\FORMOTEROL FUMARATE [Suspect]
     Active Substance: ACLIDINIUM BROMIDE\FORMOTEROL FUMARATE
     Dosage: UNKNOWN
  115. ACLIDINIUM BROMIDE\FORMOTEROL FUMARATE [Suspect]
     Active Substance: ACLIDINIUM BROMIDE\FORMOTEROL FUMARATE
     Dosage: UNKNOWN
  116. ACLIDINIUM BROMIDE\FORMOTEROL FUMARATE [Suspect]
     Active Substance: ACLIDINIUM BROMIDE\FORMOTEROL FUMARATE
     Dosage: UNKNOWN
  117. ACLIDINIUM BROMIDE\FORMOTEROL FUMARATE [Suspect]
     Active Substance: ACLIDINIUM BROMIDE\FORMOTEROL FUMARATE
     Dosage: UNKNOWN
  118. ACLIDINIUM BROMIDE\FORMOTEROL FUMARATE [Suspect]
     Active Substance: ACLIDINIUM BROMIDE\FORMOTEROL FUMARATE
     Dosage: UNKNOWN
  119. ACLIDINIUM BROMIDE\FORMOTEROL FUMARATE [Suspect]
     Active Substance: ACLIDINIUM BROMIDE\FORMOTEROL FUMARATE
     Dosage: UNKNOWN
  120. ACLIDINIUM BROMIDE\FORMOTEROL FUMARATE [Suspect]
     Active Substance: ACLIDINIUM BROMIDE\FORMOTEROL FUMARATE
     Dosage: UNKNOWN
  121. ACLIDINIUM BROMIDE\FORMOTEROL FUMARATE [Suspect]
     Active Substance: ACLIDINIUM BROMIDE\FORMOTEROL FUMARATE
     Dosage: UNKNOWN
  122. ACLIDINIUM BROMIDE\FORMOTEROL FUMARATE [Suspect]
     Active Substance: ACLIDINIUM BROMIDE\FORMOTEROL FUMARATE
     Dosage: UNKNOWN
  123. ACLIDINIUM BROMIDE\FORMOTEROL FUMARATE [Suspect]
     Active Substance: ACLIDINIUM BROMIDE\FORMOTEROL FUMARATE
     Dosage: UNKNOWN
  124. ACLIDINIUM BROMIDE\FORMOTEROL FUMARATE [Suspect]
     Active Substance: ACLIDINIUM BROMIDE\FORMOTEROL FUMARATE
     Dosage: UNKNOWN
  125. ACLIDINIUM BROMIDE\FORMOTEROL FUMARATE [Suspect]
     Active Substance: ACLIDINIUM BROMIDE\FORMOTEROL FUMARATE
     Dosage: UNKNOWN
  126. ACLIDINIUM BROMIDE\FORMOTEROL FUMARATE [Suspect]
     Active Substance: ACLIDINIUM BROMIDE\FORMOTEROL FUMARATE
     Dosage: UNKNOWN
  127. ACLIDINIUM BROMIDE\FORMOTEROL FUMARATE [Suspect]
     Active Substance: ACLIDINIUM BROMIDE\FORMOTEROL FUMARATE
     Dosage: UNKNOWN
  128. ACLIDINIUM BROMIDE\FORMOTEROL FUMARATE [Suspect]
     Active Substance: ACLIDINIUM BROMIDE\FORMOTEROL FUMARATE
     Dosage: UNKNOWN
  129. ALVESCO [Suspect]
     Active Substance: CICLESONIDE
     Indication: Product used for unknown indication
  130. ALVESCO [Suspect]
     Active Substance: CICLESONIDE
  131. ALVESCO [Suspect]
     Active Substance: CICLESONIDE
  132. ALVESCO [Suspect]
     Active Substance: CICLESONIDE
  133. ALVESCO [Suspect]
     Active Substance: CICLESONIDE
  134. ALVESCO [Suspect]
     Active Substance: CICLESONIDE
  135. ALVESCO [Suspect]
     Active Substance: CICLESONIDE
  136. ALVESCO [Suspect]
     Active Substance: CICLESONIDE
  137. ALVESCO [Suspect]
     Active Substance: CICLESONIDE
     Indication: Asthma
  138. ALVESCO [Suspect]
     Active Substance: CICLESONIDE
  139. ALVESCO [Suspect]
     Active Substance: CICLESONIDE
  140. ALVESCO [Suspect]
     Active Substance: CICLESONIDE
  141. ALVESCO [Suspect]
     Active Substance: CICLESONIDE
  142. ALVESCO [Suspect]
     Active Substance: CICLESONIDE
  143. ALVESCO [Suspect]
     Active Substance: CICLESONIDE
  144. ALVESCO [Suspect]
     Active Substance: CICLESONIDE
  145. ALVESCO [Suspect]
     Active Substance: CICLESONIDE
  146. ALVESCO [Suspect]
     Active Substance: CICLESONIDE
  147. ALVESCO [Suspect]
     Active Substance: CICLESONIDE
  148. ALVESCO [Suspect]
     Active Substance: CICLESONIDE
  149. ALVESCO [Suspect]
     Active Substance: CICLESONIDE
     Indication: Asthma
  150. ALVESCO [Suspect]
     Active Substance: CICLESONIDE
  151. ALVESCO [Suspect]
     Active Substance: CICLESONIDE
  152. ALVESCO [Suspect]
     Active Substance: CICLESONIDE
  153. ALVESCO [Suspect]
     Active Substance: CICLESONIDE
  154. ALVESCO [Suspect]
     Active Substance: CICLESONIDE
  155. ALVESCO [Suspect]
     Active Substance: CICLESONIDE
  156. ALVESCO [Suspect]
     Active Substance: CICLESONIDE
  157. ALVESCO [Suspect]
     Active Substance: CICLESONIDE
  158. ALVESCO [Suspect]
     Active Substance: CICLESONIDE
  159. ALVESCO [Suspect]
     Active Substance: CICLESONIDE
  160. ALVESCO [Suspect]
     Active Substance: CICLESONIDE
  161. ACLIDINIUM BROMIDE\FORMOTEROL FUMARATE [Suspect]
     Active Substance: ACLIDINIUM BROMIDE\FORMOTEROL FUMARATE
     Indication: Asthma
     Dosage: UNK
  162. ACLIDINIUM BROMIDE\FORMOTEROL FUMARATE [Suspect]
     Active Substance: ACLIDINIUM BROMIDE\FORMOTEROL FUMARATE
     Dosage: UNK
  163. ACLIDINIUM BROMIDE\FORMOTEROL FUMARATE [Suspect]
     Active Substance: ACLIDINIUM BROMIDE\FORMOTEROL FUMARATE
     Dosage: UNK
  164. ACLIDINIUM BROMIDE\FORMOTEROL FUMARATE [Suspect]
     Active Substance: ACLIDINIUM BROMIDE\FORMOTEROL FUMARATE
     Dosage: UNK
  165. ACLIDINIUM BROMIDE\FORMOTEROL FUMARATE [Suspect]
     Active Substance: ACLIDINIUM BROMIDE\FORMOTEROL FUMARATE
     Dosage: UNK
  166. ACLIDINIUM BROMIDE\FORMOTEROL FUMARATE [Suspect]
     Active Substance: ACLIDINIUM BROMIDE\FORMOTEROL FUMARATE
     Dosage: UNK
  167. ACLIDINIUM BROMIDE\FORMOTEROL FUMARATE [Suspect]
     Active Substance: ACLIDINIUM BROMIDE\FORMOTEROL FUMARATE
     Dosage: UNK
  168. ACLIDINIUM BROMIDE\FORMOTEROL FUMARATE [Suspect]
     Active Substance: ACLIDINIUM BROMIDE\FORMOTEROL FUMARATE
     Dosage: UNK
  169. ACLIDINIUM BROMIDE\FORMOTEROL FUMARATE [Suspect]
     Active Substance: ACLIDINIUM BROMIDE\FORMOTEROL FUMARATE
     Dosage: UNK
  170. ACLIDINIUM BROMIDE\FORMOTEROL FUMARATE [Suspect]
     Active Substance: ACLIDINIUM BROMIDE\FORMOTEROL FUMARATE
     Dosage: UNK
  171. ACLIDINIUM BROMIDE\FORMOTEROL FUMARATE [Suspect]
     Active Substance: ACLIDINIUM BROMIDE\FORMOTEROL FUMARATE
     Dosage: UNK
  172. ACLIDINIUM BROMIDE\FORMOTEROL FUMARATE [Suspect]
     Active Substance: ACLIDINIUM BROMIDE\FORMOTEROL FUMARATE
     Dosage: UNK
  173. RAMIPRIL [Suspect]
     Active Substance: RAMIPRIL
     Indication: Asthma
  174. RAMIPRIL [Suspect]
     Active Substance: RAMIPRIL
     Indication: Prophylaxis
  175. RAMIPRIL [Suspect]
     Active Substance: RAMIPRIL
  176. RAMIPRIL [Suspect]
     Active Substance: RAMIPRIL
  177. RAMIPRIL [Suspect]
     Active Substance: RAMIPRIL
  178. RAMIPRIL [Suspect]
     Active Substance: RAMIPRIL
  179. RAMIPRIL [Suspect]
     Active Substance: RAMIPRIL
  180. RAMIPRIL [Suspect]
     Active Substance: RAMIPRIL
  181. RAMIPRIL [Suspect]
     Active Substance: RAMIPRIL
  182. RAMIPRIL [Suspect]
     Active Substance: RAMIPRIL
  183. RAMIPRIL [Suspect]
     Active Substance: RAMIPRIL
  184. RAMIPRIL [Suspect]
     Active Substance: RAMIPRIL
  185. RAMIPRIL [Suspect]
     Active Substance: RAMIPRIL
  186. RAMIPRIL [Suspect]
     Active Substance: RAMIPRIL
  187. RAMIPRIL [Suspect]
     Active Substance: RAMIPRIL
  188. RAMIPRIL [Suspect]
     Active Substance: RAMIPRIL
  189. RAMIPRIL [Suspect]
     Active Substance: RAMIPRIL
  190. RAMIPRIL [Suspect]
     Active Substance: RAMIPRIL
  191. RAMIPRIL [Suspect]
     Active Substance: RAMIPRIL
  192. RAMIPRIL [Suspect]
     Active Substance: RAMIPRIL
  193. RAMIPRIL [Suspect]
     Active Substance: RAMIPRIL
  194. RAMIPRIL [Suspect]
     Active Substance: RAMIPRIL
  195. RAMIPRIL [Suspect]
     Active Substance: RAMIPRIL
  196. RAMIPRIL [Suspect]
     Active Substance: RAMIPRIL
  197. RAMIPRIL [Suspect]
     Active Substance: RAMIPRIL
  198. RAMIPRIL [Suspect]
     Active Substance: RAMIPRIL
  199. RAMIPRIL [Suspect]
     Active Substance: RAMIPRIL
  200. RAMIPRIL [Suspect]
     Active Substance: RAMIPRIL
  201. RAMIPRIL [Suspect]
     Active Substance: RAMIPRIL
  202. RAMIPRIL [Suspect]
     Active Substance: RAMIPRIL
  203. RAMIPRIL [Suspect]
     Active Substance: RAMIPRIL
  204. RAMIPRIL [Suspect]
     Active Substance: RAMIPRIL
  205. RAMIPRIL [Suspect]
     Active Substance: RAMIPRIL
  206. RAMIPRIL [Suspect]
     Active Substance: RAMIPRIL
  207. TUDORZA PRESSAIR [Suspect]
     Active Substance: ACLIDINIUM BROMIDE
     Indication: Product used for unknown indication
  208. TUDORZA PRESSAIR [Suspect]
     Active Substance: ACLIDINIUM BROMIDE
  209. BUDESONIDE\FORMOTEROL FUMARATE [Suspect]
     Active Substance: BUDESONIDE\FORMOTEROL FUMARATE
     Indication: Asthma
     Dosage: 4 DOSAGE FORM, UNKNOWN, FREQUENCY: UNK
  210. BUDESONIDE\FORMOTEROL FUMARATE [Suspect]
     Active Substance: BUDESONIDE\FORMOTEROL FUMARATE
     Dosage: 4 DOSAGE FORM, UNKNOWN, FREQUENCY: UNK
     Route: 065
  211. BUDESONIDE\FORMOTEROL FUMARATE [Suspect]
     Active Substance: BUDESONIDE\FORMOTEROL FUMARATE
     Dosage: 4 DOSAGE FORM, UNKNOWN, FREQUENCY: UNK
     Route: 065
  212. BUDESONIDE\FORMOTEROL FUMARATE [Suspect]
     Active Substance: BUDESONIDE\FORMOTEROL FUMARATE
     Dosage: 4 DOSAGE FORM, UNKNOWN, FREQUENCY: UNK
  213. BUDESONIDE\FORMOTEROL FUMARATE [Suspect]
     Active Substance: BUDESONIDE\FORMOTEROL FUMARATE
     Dosage: 2 DOSAGE FORM, Q12H 12 - EVERY HOUR, EVERY 12 HOURS
  214. BUDESONIDE\FORMOTEROL FUMARATE [Suspect]
     Active Substance: BUDESONIDE\FORMOTEROL FUMARATE
     Dosage: 2 DOSAGE FORM, Q12H 12 - EVERY HOUR, EVERY 12 HOURS
  215. BUDESONIDE\FORMOTEROL FUMARATE [Suspect]
     Active Substance: BUDESONIDE\FORMOTEROL FUMARATE
     Dosage: 2 DOSAGE FORM, Q12H 12 - EVERY HOUR, EVERY 12 HOURS
  216. BUDESONIDE\FORMOTEROL FUMARATE [Suspect]
     Active Substance: BUDESONIDE\FORMOTEROL FUMARATE
     Dosage: 2 DOSAGE FORM, Q12H 12 - EVERY HOUR, EVERY 12 HOURS
  217. BUDESONIDE\FORMOTEROL FUMARATE [Suspect]
     Active Substance: BUDESONIDE\FORMOTEROL FUMARATE
     Dosage: 4 DOSAGE FORM, UNKNOWN, FREQUENCY: UNK
  218. BUDESONIDE\FORMOTEROL FUMARATE [Suspect]
     Active Substance: BUDESONIDE\FORMOTEROL FUMARATE
     Dosage: 4 DOSAGE FORM, UNKNOWN, FREQUENCY: UNK
     Route: 065
  219. BUDESONIDE\FORMOTEROL FUMARATE [Suspect]
     Active Substance: BUDESONIDE\FORMOTEROL FUMARATE
     Dosage: 4 DOSAGE FORM, UNKNOWN, FREQUENCY: UNK
  220. BUDESONIDE\FORMOTEROL FUMARATE [Suspect]
     Active Substance: BUDESONIDE\FORMOTEROL FUMARATE
     Dosage: 4 DOSAGE FORM, UNKNOWN, FREQUENCY: UNK
     Route: 065
  221. BUDESONIDE\FORMOTEROL FUMARATE [Suspect]
     Active Substance: BUDESONIDE\FORMOTEROL FUMARATE
     Dosage: 1 DOSAGE FORM, UNKNOWN, FREQUENCY: UNK
  222. BUDESONIDE\FORMOTEROL FUMARATE [Suspect]
     Active Substance: BUDESONIDE\FORMOTEROL FUMARATE
     Dosage: 1 DOSAGE FORM, UNKNOWN, FREQUENCY: UNK
  223. BUDESONIDE\FORMOTEROL FUMARATE [Suspect]
     Active Substance: BUDESONIDE\FORMOTEROL FUMARATE
     Dosage: 1 DOSAGE FORM, UNKNOWN, FREQUENCY: UNK
  224. BUDESONIDE\FORMOTEROL FUMARATE [Suspect]
     Active Substance: BUDESONIDE\FORMOTEROL FUMARATE
     Dosage: 1 DOSAGE FORM, UNKNOWN, FREQUENCY: UNK
  225. BUDESONIDE\FORMOTEROL FUMARATE [Suspect]
     Active Substance: BUDESONIDE\FORMOTEROL FUMARATE
     Dosage: UNKNOWN, FREQUENCY: UNK
  226. BUDESONIDE\FORMOTEROL FUMARATE [Suspect]
     Active Substance: BUDESONIDE\FORMOTEROL FUMARATE
     Dosage: UNKNOWN, FREQUENCY: UNK
     Route: 065
  227. BUDESONIDE\FORMOTEROL FUMARATE [Suspect]
     Active Substance: BUDESONIDE\FORMOTEROL FUMARATE
     Dosage: UNKNOWN, FREQUENCY: UNK
     Route: 065
  228. BUDESONIDE\FORMOTEROL FUMARATE [Suspect]
     Active Substance: BUDESONIDE\FORMOTEROL FUMARATE
     Dosage: UNKNOWN, FREQUENCY: UNK
  229. BUDESONIDE\FORMOTEROL FUMARATE [Suspect]
     Active Substance: BUDESONIDE\FORMOTEROL FUMARATE
     Dosage: 2 DOSAGE FORM, Q12H
  230. BUDESONIDE\FORMOTEROL FUMARATE [Suspect]
     Active Substance: BUDESONIDE\FORMOTEROL FUMARATE
     Dosage: 2 DOSAGE FORM, Q12H
  231. BUDESONIDE\FORMOTEROL FUMARATE [Suspect]
     Active Substance: BUDESONIDE\FORMOTEROL FUMARATE
     Dosage: 2 DOSAGE FORM, Q12H
  232. BUDESONIDE\FORMOTEROL FUMARATE [Suspect]
     Active Substance: BUDESONIDE\FORMOTEROL FUMARATE
     Dosage: 2 DOSAGE FORM, Q12H
  233. BUDESONIDE\FORMOTEROL FUMARATE [Suspect]
     Active Substance: BUDESONIDE\FORMOTEROL FUMARATE
     Dosage: 4 DOSAGE FORM, Q12H
  234. BUDESONIDE\FORMOTEROL FUMARATE [Suspect]
     Active Substance: BUDESONIDE\FORMOTEROL FUMARATE
     Dosage: 4 DOSAGE FORM, Q12H
  235. BUDESONIDE\FORMOTEROL FUMARATE [Suspect]
     Active Substance: BUDESONIDE\FORMOTEROL FUMARATE
     Dosage: 4 DOSAGE FORM, Q12H
  236. BUDESONIDE\FORMOTEROL FUMARATE [Suspect]
     Active Substance: BUDESONIDE\FORMOTEROL FUMARATE
     Dosage: 4 DOSAGE FORM, Q12H
  237. BUDESONIDE\FORMOTEROL FUMARATE [Suspect]
     Active Substance: BUDESONIDE\FORMOTEROL FUMARATE
     Dosage: 4 DOSAGE FORM, UNKNOWN, FREQUENCY: UNK
  238. BUDESONIDE\FORMOTEROL FUMARATE [Suspect]
     Active Substance: BUDESONIDE\FORMOTEROL FUMARATE
     Dosage: 4 DOSAGE FORM, UNKNOWN, FREQUENCY: UNK
  239. BUDESONIDE\FORMOTEROL FUMARATE [Suspect]
     Active Substance: BUDESONIDE\FORMOTEROL FUMARATE
     Dosage: 4 DOSAGE FORM, UNKNOWN, FREQUENCY: UNK
  240. BUDESONIDE\FORMOTEROL FUMARATE [Suspect]
     Active Substance: BUDESONIDE\FORMOTEROL FUMARATE
     Dosage: 4 DOSAGE FORM, UNKNOWN, FREQUENCY: UNK
  241. BUDESONIDE\FORMOTEROL FUMARATE [Suspect]
     Active Substance: BUDESONIDE\FORMOTEROL FUMARATE
     Dosage: 4 DOSAGE FORM, UNKNOWN, FREQUENCY: UNK
  242. BUDESONIDE\FORMOTEROL FUMARATE [Suspect]
     Active Substance: BUDESONIDE\FORMOTEROL FUMARATE
     Dosage: 4 DOSAGE FORM, UNKNOWN, FREQUENCY: UNK
     Route: 065
  243. BUDESONIDE\FORMOTEROL FUMARATE [Suspect]
     Active Substance: BUDESONIDE\FORMOTEROL FUMARATE
     Dosage: 4 DOSAGE FORM, UNKNOWN, FREQUENCY: UNK
     Route: 065
  244. BUDESONIDE\FORMOTEROL FUMARATE [Suspect]
     Active Substance: BUDESONIDE\FORMOTEROL FUMARATE
     Dosage: 4 DOSAGE FORM, UNKNOWN, FREQUENCY: UNK
  245. BUDESONIDE\FORMOTEROL FUMARATE [Suspect]
     Active Substance: BUDESONIDE\FORMOTEROL FUMARATE
     Dosage: 4 DOSAGE FORM, UNKNOWN, FREQUENCY: UNK
     Route: 065
  246. BUDESONIDE\FORMOTEROL FUMARATE [Suspect]
     Active Substance: BUDESONIDE\FORMOTEROL FUMARATE
     Dosage: 4 DOSAGE FORM, UNKNOWN, FREQUENCY: UNK
  247. BUDESONIDE\FORMOTEROL FUMARATE [Suspect]
     Active Substance: BUDESONIDE\FORMOTEROL FUMARATE
     Dosage: 4 DOSAGE FORM, UNKNOWN, FREQUENCY: UNK
     Route: 065
  248. BUDESONIDE\FORMOTEROL FUMARATE [Suspect]
     Active Substance: BUDESONIDE\FORMOTEROL FUMARATE
     Dosage: 4 DOSAGE FORM, UNKNOWN, FREQUENCY: UNK
  249. ALBUTEROL [Suspect]
     Active Substance: ALBUTEROL
     Indication: Prophylaxis
     Dosage: 100 MICROGRAM, UNK, FREQUENCY: UNK
  250. ASPIRIN [Suspect]
     Active Substance: ASPIRIN
     Indication: Product used for unknown indication
     Dosage: UNK
  251. ASPIRIN [Suspect]
     Active Substance: ASPIRIN
     Dosage: UNK
  252. ASPIRIN [Suspect]
     Active Substance: ASPIRIN
     Dosage: UNK
  253. AMLODIPINE [Suspect]
     Active Substance: AMLODIPINE BESYLATE
     Indication: Product used for unknown indication
  254. AMLODIPINE [Suspect]
     Active Substance: AMLODIPINE BESYLATE
  255. AMLODIPINE [Suspect]
     Active Substance: AMLODIPINE BESYLATE
  256. AMLODIPINE [Suspect]
     Active Substance: AMLODIPINE BESYLATE
  257. AMLODIPINE [Suspect]
     Active Substance: AMLODIPINE BESYLATE
  258. AMLODIPINE [Suspect]
     Active Substance: AMLODIPINE BESYLATE
  259. AMLODIPINE [Suspect]
     Active Substance: AMLODIPINE BESYLATE
     Dosage: 10 MILLIGRAM
  260. AMLODIPINE [Suspect]
     Active Substance: AMLODIPINE BESYLATE
     Dosage: 10 MILLIGRAM
  261. ACETYLCYSTEINE [Suspect]
     Active Substance: ACETYLCYSTEINE
     Indication: Product used for unknown indication
  262. ACETYLCYSTEINE [Suspect]
     Active Substance: ACETYLCYSTEINE
  263. ACETYLCYSTEINE [Suspect]
     Active Substance: ACETYLCYSTEINE
  264. ACETYLCYSTEINE [Suspect]
     Active Substance: ACETYLCYSTEINE
  265. ACETYLCYSTEINE [Suspect]
     Active Substance: ACETYLCYSTEINE
  266. AZITHROMYCIN [Suspect]
     Active Substance: AZITHROMYCIN
     Indication: Product used for unknown indication
     Dosage: PMS
  267. AZITHROMYCIN [Suspect]
     Active Substance: AZITHROMYCIN
  268. AZITHROMYCIN [Suspect]
     Active Substance: AZITHROMYCIN
  269. AZITHROMYCIN [Suspect]
     Active Substance: AZITHROMYCIN
  270. AZITHROMYCIN [Suspect]
     Active Substance: AZITHROMYCIN
  271. AZITHROMYCIN [Suspect]
     Active Substance: AZITHROMYCIN
  272. AZITHROMYCIN [Suspect]
     Active Substance: AZITHROMYCIN
  273. AZITHROMYCIN [Suspect]
     Active Substance: AZITHROMYCIN
  274. DOXYCYCLINE [Suspect]
     Active Substance: DOXYCYCLINE
     Indication: Product used for unknown indication
  275. DOXYCYCLINE [Suspect]
     Active Substance: DOXYCYCLINE
  276. DOXYCYCLINE [Suspect]
     Active Substance: DOXYCYCLINE
  277. DOXYCYCLINE [Suspect]
     Active Substance: DOXYCYCLINE
  278. DOXYCYCLINE [Suspect]
     Active Substance: DOXYCYCLINE
  279. DOXYCYCLINE [Suspect]
     Active Substance: DOXYCYCLINE
  280. DOXYCYCLINE [Suspect]
     Active Substance: DOXYCYCLINE
  281. DOXYCYCLINE [Suspect]
     Active Substance: DOXYCYCLINE
  282. LEVOFLOXACIN [Suspect]
     Active Substance: LEVOFLOXACIN
     Indication: Product used for unknown indication
     Dosage: NOT SPECIFIED
  283. LEVOFLOXACIN [Suspect]
     Active Substance: LEVOFLOXACIN
     Dosage: NOT SPECIFIED
  284. LEVOFLOXACIN [Suspect]
     Active Substance: LEVOFLOXACIN
     Dosage: NOT SPECIFIED
  285. LEVOFLOXACIN [Suspect]
     Active Substance: LEVOFLOXACIN
     Dosage: NOT SPECIFIED
  286. LYRICA [Suspect]
     Active Substance: PREGABALIN
     Indication: Product used for unknown indication
  287. LYRICA [Suspect]
     Active Substance: PREGABALIN
  288. LYRICA [Suspect]
     Active Substance: PREGABALIN
  289. LYRICA [Suspect]
     Active Substance: PREGABALIN
  290. LYRICA [Suspect]
     Active Substance: PREGABALIN
  291. LYRICA [Suspect]
     Active Substance: PREGABALIN
  292. LYRICA [Suspect]
     Active Substance: PREGABALIN
  293. LYRICA [Suspect]
     Active Substance: PREGABALIN
  294. LYRICA [Suspect]
     Active Substance: PREGABALIN
  295. LYRICA [Suspect]
     Active Substance: PREGABALIN
  296. LYRICA [Suspect]
     Active Substance: PREGABALIN
  297. LYRICA [Suspect]
     Active Substance: PREGABALIN
  298. LYRICA [Suspect]
     Active Substance: PREGABALIN
  299. LYRICA [Suspect]
     Active Substance: PREGABALIN
  300. MELATONIN [Suspect]
     Active Substance: MELATONIN
     Indication: Product used for unknown indication
  301. MELATONIN [Suspect]
     Active Substance: MELATONIN
  302. NAPROXEN [Suspect]
     Active Substance: NAPROXEN
     Indication: Product used for unknown indication
  303. NAPROXEN [Suspect]
     Active Substance: NAPROXEN
  304. NAPROXEN [Suspect]
     Active Substance: NAPROXEN
  305. NAPROXEN [Suspect]
     Active Substance: NAPROXEN
  306. NAPROXEN [Suspect]
     Active Substance: NAPROXEN
  307. NAPROXEN [Suspect]
     Active Substance: NAPROXEN
  308. NAPROXEN [Suspect]
     Active Substance: NAPROXEN
  309. NAPROXEN [Suspect]
     Active Substance: NAPROXEN
  310. NAPROXEN [Suspect]
     Active Substance: NAPROXEN
  311. NAPROXEN [Suspect]
     Active Substance: NAPROXEN
  312. NAPROXEN [Suspect]
     Active Substance: NAPROXEN
  313. NAPROXEN [Suspect]
     Active Substance: NAPROXEN
  314. NAPROXEN [Suspect]
     Active Substance: NAPROXEN
  315. PREDNISONE [Suspect]
     Active Substance: PREDNISONE
     Indication: Asthma
  316. PREDNISONE [Suspect]
     Active Substance: PREDNISONE
  317. PREDNISONE [Suspect]
     Active Substance: PREDNISONE
  318. PREDNISONE [Suspect]
     Active Substance: PREDNISONE
  319. PREDNISONE [Suspect]
     Active Substance: PREDNISONE
  320. PREDNISONE [Suspect]
     Active Substance: PREDNISONE
  321. PREDNISONE [Suspect]
     Active Substance: PREDNISONE
  322. PREDNISONE [Suspect]
     Active Substance: PREDNISONE
  323. PREDNISONE [Suspect]
     Active Substance: PREDNISONE
  324. PREGABALIN [Suspect]
     Active Substance: PREGABALIN
     Indication: Product used for unknown indication
     Dosage: UNK
  325. PREGABALIN [Suspect]
     Active Substance: PREGABALIN
     Dosage: UNK
  326. PREGABALIN [Suspect]
     Active Substance: PREGABALIN
     Dosage: UNK
  327. PREGABALIN [Suspect]
     Active Substance: PREGABALIN
     Dosage: UNK
  328. PREGABALIN [Suspect]
     Active Substance: PREGABALIN
     Dosage: UNK
  329. PREGABALIN [Suspect]
     Active Substance: PREGABALIN
     Dosage: UNK
  330. PREGABALIN [Suspect]
     Active Substance: PREGABALIN
     Dosage: UNK
  331. PREGABALIN [Suspect]
     Active Substance: PREGABALIN
     Dosage: UNK
  332. PREGABALIN [Suspect]
     Active Substance: PREGABALIN
     Dosage: UNK
  333. PREGABALIN [Suspect]
     Active Substance: PREGABALIN
     Dosage: UNK
  334. PREGABALIN [Suspect]
     Active Substance: PREGABALIN
     Dosage: UNK
  335. PREGABALIN [Suspect]
     Active Substance: PREGABALIN
     Dosage: UNK
  336. ALBUTEROL SULFATE [Suspect]
     Active Substance: ALBUTEROL SULFATE
     Indication: Asthma
     Dosage: UNK
  337. ALBUTEROL SULFATE [Suspect]
     Active Substance: ALBUTEROL SULFATE
     Dosage: UNK
  338. ALBUTEROL SULFATE [Suspect]
     Active Substance: ALBUTEROL SULFATE
     Dosage: 100 MICROGRAMS PER INHALATION, FREQUENCY: UNK
  339. ALBUTEROL SULFATE [Suspect]
     Active Substance: ALBUTEROL SULFATE
     Dosage: 100 MICROGRAMS PER INHALATION, FREQUENCY: UNK
  340. ALBUTEROL SULFATE [Suspect]
     Active Substance: ALBUTEROL SULFATE
     Dosage: UNK
  341. ALBUTEROL SULFATE [Suspect]
     Active Substance: ALBUTEROL SULFATE
     Dosage: UNK
  342. SPIRIVA [Suspect]
     Active Substance: TIOTROPIUM BROMIDE MONOHYDRATE
     Indication: Asthma
     Dosage: 1 DOSAGE FORM, QD
  343. SPIRIVA [Suspect]
     Active Substance: TIOTROPIUM BROMIDE MONOHYDRATE
     Dosage: 1 DOSAGE FORM, QD
  344. SPIRIVA [Suspect]
     Active Substance: TIOTROPIUM BROMIDE MONOHYDRATE
  345. SPIRIVA [Suspect]
     Active Substance: TIOTROPIUM BROMIDE MONOHYDRATE
  346. SPIRIVA [Suspect]
     Active Substance: TIOTROPIUM BROMIDE MONOHYDRATE
  347. SPIRIVA [Suspect]
     Active Substance: TIOTROPIUM BROMIDE MONOHYDRATE
  348. SPIRIVA [Suspect]
     Active Substance: TIOTROPIUM BROMIDE MONOHYDRATE
  349. SPIRIVA [Suspect]
     Active Substance: TIOTROPIUM BROMIDE MONOHYDRATE
  350. SPIRIVA [Suspect]
     Active Substance: TIOTROPIUM BROMIDE MONOHYDRATE
  351. SPIRIVA [Suspect]
     Active Substance: TIOTROPIUM BROMIDE MONOHYDRATE
  352. ALBUTEROL SULFATE [Suspect]
     Active Substance: ALBUTEROL SULFATE
     Indication: Asthma
     Dosage: UNKNOWN
  353. ALBUTEROL SULFATE [Suspect]
     Active Substance: ALBUTEROL SULFATE
     Dosage: UNKNOWN
  354. ALBUTEROL SULFATE [Suspect]
     Active Substance: ALBUTEROL SULFATE
     Dosage: UNKNOWN
  355. ALBUTEROL SULFATE [Suspect]
     Active Substance: ALBUTEROL SULFATE
     Dosage: UNKNOWN
  356. ALBUTEROL SULFATE [Suspect]
     Active Substance: ALBUTEROL SULFATE
     Dosage: UNKNOWN
  357. ALBUTEROL SULFATE [Suspect]
     Active Substance: ALBUTEROL SULFATE
     Dosage: UNKNOWN
  358. ALBUTEROL SULFATE [Suspect]
     Active Substance: ALBUTEROL SULFATE
     Dosage: UNKNOWN
  359. ALBUTEROL SULFATE [Suspect]
     Active Substance: ALBUTEROL SULFATE
     Dosage: UNKNOWN
  360. FLOMAX [Suspect]
     Active Substance: TAMSULOSIN HYDROCHLORIDE
     Indication: Product used for unknown indication
     Dosage: UNKNOWN
  361. FLOMAX [Suspect]
     Active Substance: TAMSULOSIN HYDROCHLORIDE
     Indication: Product used for unknown indication
     Dosage: UNKNOWN
  362. FLOMAX [Suspect]
     Active Substance: TAMSULOSIN HYDROCHLORIDE
     Dosage: UNKNOWN
  363. FLOMAX [Suspect]
     Active Substance: TAMSULOSIN HYDROCHLORIDE
     Dosage: UNKNOWN
  364. FLOMAX [Suspect]
     Active Substance: TAMSULOSIN HYDROCHLORIDE
     Dosage: UNKNOWN
  365. FLOMAX [Suspect]
     Active Substance: TAMSULOSIN HYDROCHLORIDE
     Dosage: UNKNOWN
  366. FLOMAX [Suspect]
     Active Substance: TAMSULOSIN HYDROCHLORIDE
     Dosage: UNKNOWN
  367. FLOMAX [Suspect]
     Active Substance: TAMSULOSIN HYDROCHLORIDE
     Dosage: UNKNOWN
  368. FLOMAX [Suspect]
     Active Substance: TAMSULOSIN HYDROCHLORIDE
     Dosage: UNKNOWN
  369. TAMSULOSIN [Suspect]
     Active Substance: TAMSULOSIN
     Indication: Product used for unknown indication
  370. ASACOL [Suspect]
     Active Substance: MESALAMINE
     Indication: Product used for unknown indication
  371. ASACOL [Suspect]
     Active Substance: MESALAMINE
  372. PREVNAR 13 [Suspect]
     Active Substance: STREPTOCOCCUS PNEUMONIAE TYPE 1 CAPSULAR POLYSACCHARIDE DIPHTHERIA CRM197 PROTEIN CONJUGATE ANTIGEN\
     Indication: Prophylaxis
     Dosage: UNK
  373. PREVNAR 13 [Suspect]
     Active Substance: STREPTOCOCCUS PNEUMONIAE TYPE 1 CAPSULAR POLYSACCHARIDE DIPHTHERIA CRM197 PROTEIN CONJUGATE ANTIGEN\
     Dosage: UNK
  374. PNEUMOCOCCAL 13-VALENT CONJUGATE VACCINE [Suspect]
     Active Substance: PNEUMOCOCCAL 13-VALENT CONJUGATE VACCINE
     Indication: Prophylaxis
  375. MESALAMINE [Suspect]
     Active Substance: MESALAMINE
     Indication: Product used for unknown indication
  376. PANTOPRAZOLE [Suspect]
     Active Substance: PANTOPRAZOLE
     Indication: Product used for unknown indication
  377. PANTOPRAZOLE [Suspect]
     Active Substance: PANTOPRAZOLE
  378. PANTOPRAZOLE [Suspect]
     Active Substance: PANTOPRAZOLE
  379. PANTOPRAZOLE [Suspect]
     Active Substance: PANTOPRAZOLE
  380. PANTOPRAZOLE [Suspect]
     Active Substance: PANTOPRAZOLE
  381. PANTOPRAZOLE [Suspect]
     Active Substance: PANTOPRAZOLE
     Indication: Product used for unknown indication
     Dosage: ANHYDROUS
  382. PANTOPRAZOLE [Suspect]
     Active Substance: PANTOPRAZOLE
     Dosage: ANHYDROUS
  383. PANTOPRAZOLE [Suspect]
     Active Substance: PANTOPRAZOLE
     Dosage: ANHYDROUS
  384. PANTOPRAZOLE [Suspect]
     Active Substance: PANTOPRAZOLE
     Dosage: ANHYDROUS
  385. DOXYCYCLINE HYCLATE [Suspect]
     Active Substance: DOXYCYCLINE HYCLATE
     Indication: Product used for unknown indication
  386. DOXYCYCLINE HYCLATE [Suspect]
     Active Substance: DOXYCYCLINE HYCLATE
  387. NAPROXEN SODIUM [Suspect]
     Active Substance: NAPROXEN SODIUM
     Indication: Product used for unknown indication
     Dosage: NOT SPECIFIED
  388. NAPROXEN SODIUM [Suspect]
     Active Substance: NAPROXEN SODIUM
     Dosage: NOT SPECIFIED
  389. AMLODIPINE MALEATE [Suspect]
     Active Substance: AMLODIPINE MALEATE
     Indication: Product used for unknown indication
  390. AMLODIPINE MALEATE [Suspect]
     Active Substance: AMLODIPINE MALEATE
  391. AMLODIPINE MALEATE [Suspect]
     Active Substance: AMLODIPINE MALEATE
  392. AMLODIPINE MALEATE [Suspect]
     Active Substance: AMLODIPINE MALEATE
  393. AZITHROMYCIN DIHYDRATE [Suspect]
     Active Substance: AZITHROMYCIN DIHYDRATE
     Indication: Product used for unknown indication
  394. LEVOFLOXACIN HEMIHYDRATE [Suspect]
     Active Substance: LEVOFLOXACIN
     Indication: Product used for unknown indication
     Dosage: UNK
  395. LEVOFLOXACIN HEMIHYDRATE [Suspect]
     Active Substance: LEVOFLOXACIN
     Dosage: UNK
  396. LEVOFLOXACIN HEMIHYDRATE [Suspect]
     Active Substance: LEVOFLOXACIN
     Dosage: UNK
  397. LEVOFLOXACIN HEMIHYDRATE [Suspect]
     Active Substance: LEVOFLOXACIN
     Dosage: UNK
  398. LEVOFLOXACIN HEMIHYDRATE [Suspect]
     Active Substance: LEVOFLOXACIN
     Dosage: UNK
  399. LEVOFLOXACIN HEMIHYDRATE [Suspect]
     Active Substance: LEVOFLOXACIN
     Dosage: UNK
  400. AMLODIPINE BESYLATE [Suspect]
     Active Substance: AMLODIPINE BESYLATE
     Indication: Product used for unknown indication
  401. AMLODIPINE BESYLATE [Suspect]
     Active Substance: AMLODIPINE BESYLATE
  402. MORNIFLUMATE [Suspect]
     Active Substance: MORNIFLUMATE
  403. LEVOFLOXACIN [Suspect]
     Active Substance: LEVOFLOXACIN
  404. ACLIDINIUM BROMIDE [Suspect]
     Active Substance: ACLIDINIUM BROMIDE
     Indication: Asthma
  405. ACLIDINIUM BROMIDE [Suspect]
     Active Substance: ACLIDINIUM BROMIDE
  406. PNEUMOCOCCAL 7-VALENT CONJUGATE VACCINE (DIPHTHERIA CRM197 PROTEIN) [Suspect]
     Active Substance: PNEUMOCOCCAL 7-VALENT CONJUGATE VACCINE (DIPHTHERIA CRM197 PROTEIN)
     Indication: Prophylaxis
  407. TIOTROPIUM BROMIDE MONOHYDRATE [Suspect]
     Active Substance: TIOTROPIUM BROMIDE MONOHYDRATE
     Indication: Asthma
     Dosage: UNK UNK, QD
  408. TIOTROPIUM BROMIDE MONOHYDRATE [Suspect]
     Active Substance: TIOTROPIUM BROMIDE MONOHYDRATE
     Dosage: UNK UNK, QD
  409. TIOTROPIUM BROMIDE MONOHYDRATE [Suspect]
     Active Substance: TIOTROPIUM BROMIDE MONOHYDRATE
     Dosage: UNK UNK, QD
  410. TIOTROPIUM BROMIDE MONOHYDRATE [Suspect]
     Active Substance: TIOTROPIUM BROMIDE MONOHYDRATE
     Dosage: UNK UNK, QD
  411. TIOTROPIUM BROMIDE MONOHYDRATE [Suspect]
     Active Substance: TIOTROPIUM BROMIDE MONOHYDRATE
     Dosage: UNK UNK, QD
  412. TIOTROPIUM BROMIDE MONOHYDRATE [Suspect]
     Active Substance: TIOTROPIUM BROMIDE MONOHYDRATE
     Dosage: UNK UNK, QD
  413. TAMSULOSIN HYDROCHLORIDE [Suspect]
     Active Substance: TAMSULOSIN HYDROCHLORIDE
     Indication: Product used for unknown indication
  414. AMLODIPINE [Suspect]
     Active Substance: AMLODIPINE BESYLATE
     Indication: Product used for unknown indication
  415. AMLODIPINE [Suspect]
     Active Substance: AMLODIPINE BESYLATE
  416. SODIUM SULFATE ANHYDROUS [Suspect]
     Active Substance: SODIUM SULFATE ANHYDROUS
     Indication: Product used for unknown indication
  417. FINASTERIDE\TAMSULOSIN [Suspect]
     Active Substance: FINASTERIDE\TAMSULOSIN
     Indication: Product used for unknown indication
  418. TADALAFIL [Suspect]
     Active Substance: TADALAFIL
     Indication: Product used for unknown indication
  419. FINASTERIDE\TAMSULOSIN [Suspect]
     Active Substance: FINASTERIDE\TAMSULOSIN
     Indication: Product used for unknown indication
  420. ASPIRIN [Suspect]
     Active Substance: ASPIRIN
     Indication: Product used for unknown indication
  421. ASPIRIN [Suspect]
     Active Substance: ASPIRIN

REACTIONS (28)
  - Asthma [Unknown]
  - Benign prostatic hyperplasia [Unknown]
  - Breath sounds abnormal [Unknown]
  - Bronchiectasis [Unknown]
  - Chronic obstructive pulmonary disease [Unknown]
  - Congenital hiatus hernia [Unknown]
  - Coronary artery disease [Unknown]
  - Dyspnoea [Unknown]
  - Dyspnoea exertional [Unknown]
  - Full blood count abnormal [Unknown]
  - Gastrooesophageal reflux disease [Unknown]
  - Gastrooesophageal reflux disease [Unknown]
  - Hypercholesterolaemia [Unknown]
  - Hypertension [Unknown]
  - Joint injury [Unknown]
  - Joint injury [Unknown]
  - Loss of personal independence in daily activities [Unknown]
  - Malignant melanoma in situ [Unknown]
  - Micturition urgency [Unknown]
  - Micturition urgency [Unknown]
  - Obstructive airways disorder [Unknown]
  - Off label use [Unknown]
  - Product administered to patient of inappropriate age [Unknown]
  - Productive cough [Unknown]
  - Therapeutic product effect incomplete [Unknown]
  - Transient ischaemic attack [Unknown]
  - Wheezing [Unknown]
  - Drug ineffective [Unknown]
